FAERS Safety Report 5906747-X (Version None)
Quarter: 2008Q3

REPORT INFORMATION
  Report Type: 
  Country: None (occurrence: None)
  Receive Date: 20080930
  Receipt Date: 20080711
  Transmission Date: 20090109
  Serious: No
  Sender: FDA-Public Use
  Company Number: 2008EU001559

PATIENT
  Sex: Male

DRUGS (1)
  1. PROTOPIC [Suspect]
     Dosage: TOPICAL
     Route: 061

REACTIONS (1)
  - SKIN PAPILLOMA [None]
